FAERS Safety Report 5599253-6 (Version None)
Quarter: 2008Q1

REPORT INFORMATION
  Report Type: 
  Country: None (occurrence: None)
  Receive Date: 20080117
  Receipt Date: 20080107
  Transmission Date: 20080703
  Serious: Yes (Hospitalization)
  Sender: FDA-Public Use
  Company Number: 2007BI024354

PATIENT
  Age: 54 Year
  Sex: Female

DRUGS (10)
  1. AVONEX [Suspect]
     Indication: MULTIPLE SCLEROSIS
     Dosage: 30 UG; QW; IM
     Route: 030
  2. TOPAMAX [Concomitant]
  3. PREDNISONE TAB [Concomitant]
  4. CELEXA [Concomitant]
  5. LYRICA [Concomitant]
  6. MIRALAX [Concomitant]
  7. OXYCONTIN [Concomitant]
  8. SEROQUEL [Concomitant]
  9. RELPAX [Concomitant]
  10. MACRODANTIN [Concomitant]

REACTIONS (2)
  - GRAND MAL CONVULSION [None]
  - NEUROGENIC BLADDER [None]
